FAERS Safety Report 11908569 (Version 1)
Quarter: 2016Q1

REPORT INFORMATION
  Report Type: Report from Study
  Country: NL (occurrence: NL)
  Receive Date: 20160111
  Receipt Date: 20160111
  Transmission Date: 20160526
  Serious: Yes (Death)
  Sender: FDA-Public Use
  Company Number: NL-MYLANLABS-2016M1001048

PATIENT

DRUGS (3)
  1. PHENYTOIN. [Concomitant]
     Active Substance: PHENYTOIN
     Indication: CONVULSION NEONATAL
     Route: 065
  2. LIDOCAINE. [Suspect]
     Active Substance: LIDOCAINE
     Indication: CONVULSION NEONATAL
     Dosage: 10 MG/KG
     Route: 040
  3. LIDOCAINE. [Suspect]
     Active Substance: LIDOCAINE
     Dosage: 24H INFUSION OF 6 MG/KG/H, FOLLOWED BY 12 H OF 4 MG/KG/H,
     Route: 041

REACTIONS (3)
  - Bradycardia [Fatal]
  - Myocardial infarction [Fatal]
  - Cardiac arrest [Fatal]
